FAERS Safety Report 17913148 (Version 3)
Quarter: 2020Q3

REPORT INFORMATION
  Report Type: Spontaneous
  Country: NL (occurrence: NL)
  Receive Date: 20200618
  Receipt Date: 20200731
  Transmission Date: 20201103
  Serious: No
  Sender: FDA-Public Use
  Company Number: NL-JNJFOC-20200610326

PATIENT
  Sex: Female

DRUGS (1)
  1. DUROGESIC [Suspect]
     Active Substance: FENTANYL
     Indication: PRODUCT USED FOR UNKNOWN INDICATION
     Dosage: 12 UG
     Route: 062

REACTIONS (4)
  - Erythema [Unknown]
  - Hypersensitivity [Unknown]
  - Product adhesion issue [Unknown]
  - Skin irritation [Unknown]
